FAERS Safety Report 8131880-4 (Version None)
Quarter: 2012Q1

REPORT INFORMATION
  Report Type: 
  Country: None (occurrence: None)
  Receive Date: 20120213
  Receipt Date: 20120202
  Transmission Date: 20120608
  Serious: Yes (Other)
  Sender: FDA-Public Use
  Company Number: GB-UCBSA-051013

PATIENT
  Sex: Male

DRUGS (1)
  1. VIMPAT [Suspect]
     Indication: CONVULSION

REACTIONS (1)
  - OBSESSIVE-COMPULSIVE DISORDER [None]
